FAERS Safety Report 9857022 (Version 1)
Quarter: 2014Q1

REPORT INFORMATION
  Report Type: Report from Study
  Country: IT (occurrence: IT)
  Receive Date: 20140130
  Receipt Date: 20140130
  Transmission Date: 20141002
  Serious: Yes (Hospitalization)
  Sender: FDA-Public Use
  Company Number: IT-TEVA-458215ISR

PATIENT
  Age: 73 Year
  Sex: Male

DRUGS (4)
  1. MYOCET [Suspect]
     Indication: HODGKIN^S DISEASE
     Dosage: 45 MILLIGRAM DAILY;
     Route: 042
     Dates: start: 20111230, end: 20111230
  2. VINBLASTINA TEVA [Suspect]
     Indication: HODGKIN^S DISEASE
     Dosage: 10 MILLIGRAM DAILY;
     Route: 042
     Dates: start: 20111230, end: 20111230
  3. BLEOMICINA [Suspect]
     Indication: HODGKIN^S DISEASE
  4. DACARBAZINA [Suspect]
     Indication: HODGKIN^S DISEASE
     Dosage: 675 MILLIGRAM DAILY;
     Route: 042
     Dates: start: 20111230, end: 20111230

REACTIONS (1)
  - Deep vein thrombosis [Recovered/Resolved]
